FAERS Safety Report 25498656 (Version 3)
Quarter: 2025Q3

REPORT INFORMATION
  Report Type: Spontaneous
  Country: US (occurrence: US)
  Receive Date: 20250701
  Receipt Date: 20250729
  Transmission Date: 20251020
  Serious: Yes (Death)
  Sender: AMGEN
  Company Number: US-AMGEN-USASP2025128067

PATIENT
  Age: 49 Year
  Sex: Male
  Weight: 160 kg

DRUGS (22)
  1. OTEZLA [Suspect]
     Active Substance: APREMILAST
     Indication: Ankylosing spondylitis
     Dosage: 30 MILLIGRAM, BID
     Route: 048
     Dates: start: 201905, end: 20250529
  2. OTEZLA [Suspect]
     Active Substance: APREMILAST
     Indication: Off label use
  3. ALBUTEROL SULFATE [Concomitant]
     Active Substance: ALBUTEROL SULFATE
  4. CLONIDINE [Concomitant]
     Active Substance: CLONIDINE
     Dosage: 1 MILLIGRAM, QD (0.1 MILLIGRAM)
     Route: 048
  5. GEMFIBROZIL [Concomitant]
     Active Substance: GEMFIBROZIL
     Dosage: 600 MILLIGRAM, BID
     Route: 048
  6. LOSARTAN [Concomitant]
     Active Substance: LOSARTAN
     Dosage: 100 MILLIGRAM, QD
     Route: 048
  7. NOVOLOG [Concomitant]
     Active Substance: INSULIN ASPART
     Dosage: 250 UNIT, QD (BEFORE MEAL )
     Route: 058
  8. ROSUVASTATIN [Concomitant]
     Active Substance: ROSUVASTATIN
     Dosage: 5 MILLIGRAM, QD
     Route: 048
  9. TRULICITY [Concomitant]
     Active Substance: DULAGLUTIDE
     Dosage: QWK (1.5 PER 0.5 MILLIGRAM PER MILLILITRE)
     Route: 058
  10. ALLOPURINOL [Concomitant]
     Active Substance: ALLOPURINOL
     Dosage: 100 MILLIGRAM, QD
     Route: 048
  11. DILTIAZEM [Concomitant]
     Active Substance: DILTIAZEM
     Dosage: 360 MILLIGRAM, QD (24 HR/CD)
     Route: 048
  12. HYDRALAZINE [Concomitant]
     Active Substance: HYDRALAZINE HYDROCHLORIDE
     Dosage: 50 MILLIGRAM, BID
     Route: 048
  13. METFORMIN [Concomitant]
     Active Substance: METFORMIN HYDROCHLORIDE
     Dosage: 1000 MILLIGRAM, BID
     Route: 048
  14. TRESIBA [Concomitant]
     Active Substance: INSULIN DEGLUDEC
     Dosage: 40 UNIT, BID
     Route: 058
  15. XTAMPZA ER [Concomitant]
     Active Substance: OXYCODONE
     Route: 048
  16. ACETAMINOPHEN\HYDROCODONE [Concomitant]
     Active Substance: ACETAMINOPHEN\HYDROCODONE
  17. METOPROLOL SUCCINATE [Concomitant]
     Active Substance: METOPROLOL SUCCINATE
     Dosage: 200 MILLIGRAM, QD
     Route: 048
  18. OZEMPIC [Concomitant]
     Active Substance: SEMAGLUTIDE
  19. NORCO [Concomitant]
     Active Substance: ACETAMINOPHEN\HYDROCODONE BITARTRATE
     Indication: Pain
     Route: 048
  20. VENTOLIN HFA [Concomitant]
     Active Substance: ALBUTEROL SULFATE
     Indication: Wheezing
  21. FLUOCINOLONE [Concomitant]
     Active Substance: FLUOCINOLONE
     Indication: Rash
     Dosage: 30 MILLIGRAM, BID (AS NEEDED)
     Route: 061
  22. FLUOCINOLONE [Concomitant]
     Active Substance: FLUOCINOLONE
     Indication: Psoriasis

REACTIONS (5)
  - Aortic dilatation [Fatal]
  - Cardiovascular disorder [Fatal]
  - Off label use [Unknown]
  - Psoriasis [Unknown]
  - Dyspnoea [Unknown]

NARRATIVE: CASE EVENT DATE: 20200325
